FAERS Safety Report 23817851 (Version 1)
Quarter: 2024Q2

REPORT INFORMATION
  Report Type: Spontaneous
  Country: US (occurrence: US)
  Receive Date: 20240506
  Receipt Date: 20240506
  Transmission Date: 20240716
  Serious: Yes (Hospitalization)
  Sender: FDA-Public Use
  Company Number: US-HALEON-2166846

PATIENT
  Age: 69 Year
  Sex: Female

DRUGS (12)
  1. FLUTICASONE PROPIONATE [Suspect]
     Active Substance: FLUTICASONE PROPIONATE
     Indication: Nasal congestion
     Route: 045
  2. SELEXIPAG [Suspect]
     Active Substance: SELEXIPAG
     Indication: Pulmonary arterial hypertension
     Dosage: EXPDATE:20250831 800 MCG
     Route: 048
     Dates: start: 202309
  3. SELEXIPAG [Suspect]
     Active Substance: SELEXIPAG
     Dosage: 800 MCGEXPDATE:20250831
     Route: 048
     Dates: start: 20231002
  4. SELEXIPAG [Suspect]
     Active Substance: SELEXIPAG
     Dosage: 1200 MCGEXPDATE:20250831
     Route: 048
     Dates: start: 202309
  5. SELEXIPAG [Suspect]
     Active Substance: SELEXIPAG
     Dosage: 1600 MCGEXPDATE:202508
     Route: 048
     Dates: start: 202309
  6. SELEXIPAG [Suspect]
     Active Substance: SELEXIPAG
     Dosage: EXPDATE:20250731 1600 MCG
     Route: 048
     Dates: start: 202310
  7. SELEXIPAG [Suspect]
     Active Substance: SELEXIPAG
     Dosage: 200 MCG
     Route: 048
  8. SELEXIPAG [Suspect]
     Active Substance: SELEXIPAG
     Dosage: 3200 MCG
     Route: 048
     Dates: start: 202309
  9. ALBUTEROL [Suspect]
     Active Substance: ALBUTEROL
     Indication: Product used for unknown indication
  10. TADALAFIL [Concomitant]
     Active Substance: TADALAFIL
     Indication: Product used for unknown indication
  11. AMBRISENTAN [Concomitant]
     Active Substance: AMBRISENTAN
     Indication: Product used for unknown indication
  12. MYCOPHENOLIC ACID [Concomitant]
     Active Substance: MYCOPHENOLIC ACID
     Indication: Product used for unknown indication

REACTIONS (10)
  - Pneumonia [Recovering/Resolving]
  - Pain in extremity [Not Recovered/Not Resolved]
  - Epistaxis [Not Recovered/Not Resolved]
  - Headache [Not Recovered/Not Resolved]
  - Malaise [Not Recovered/Not Resolved]
  - Peripheral swelling [Recovered/Resolved]
  - Hypoacusis [Unknown]
  - Heart rate increased [Unknown]
  - Influenza like illness [Not Recovered/Not Resolved]
  - Muscle discomfort [Recovered/Resolved]

NARRATIVE: CASE EVENT DATE: 20231002
